FAERS Safety Report 21719935 (Version 1)
Quarter: 2022Q4

REPORT INFORMATION
  Report Type: Spontaneous
  Country: US (occurrence: US)
  Receive Date: 20221213
  Receipt Date: 20221213
  Transmission Date: 20230112
  Serious: No
  Sender: FDA-Public Use
  Company Number: US-ORGANON-O2212USA000474

PATIENT
  Sex: Female

DRUGS (4)
  1. FOLLISTIM AQ [Suspect]
     Active Substance: FOLLITROPIN
     Dosage: 225 IU TWICE A DAY
     Dates: start: 20221128
  2. FOLLISTIM AQ [Suspect]
     Active Substance: FOLLITROPIN
  3. FOLLISTIM AQ [Suspect]
     Active Substance: FOLLITROPIN
     Dosage: 225 IU TWICE A DAY
     Dates: start: 20221128
  4. FOLLISTIM AQ [Suspect]
     Active Substance: FOLLITROPIN

REACTIONS (7)
  - Product packaging quantity issue [Unknown]
  - Incorrect dose administered [Unknown]
  - Poor quality device used [Unknown]
  - Product packaging quantity issue [Unknown]
  - Incorrect dose administered [Unknown]
  - Poor quality device used [Unknown]
  - No adverse event [Unknown]

NARRATIVE: CASE EVENT DATE: 20220101
